FAERS Safety Report 17269970 (Version 1)
Quarter: 2020Q1

REPORT INFORMATION
  Report Type: Spontaneous
  Country: RU (occurrence: RU)
  Receive Date: 20200114
  Receipt Date: 20200114
  Transmission Date: 20200409
  Serious: Yes (Death, Other)
  Sender: FDA-Public Use
  Company Number: RU-BAYER-2020-006357

PATIENT
  Age: 46 Year
  Sex: Female

DRUGS (6)
  1. IRINOTECAN [Concomitant]
     Active Substance: IRINOTECAN
     Dosage: 6 MG/M2 EVERY 3 WEEKS
  2. PERTUZUMAB;TRASTUZUMAB [Concomitant]
  3. TRASTUZUMAB. [Concomitant]
     Active Substance: TRASTUZUMAB
  4. STIVARGA [Suspect]
     Active Substance: REGORAFENIB
     Dosage: UNK
     Dates: start: 201803
  5. IRINOTECAN [Concomitant]
     Active Substance: IRINOTECAN
     Dosage: 125 MG/M2 ONCE WEEKLY FOR 4 WEEKS WITH A 2-WEEK PAUSE
  6. IRINOTECAN [Concomitant]
     Active Substance: IRINOTECAN
     Dosage: 8 MG/KG

REACTIONS (5)
  - Hepatic failure [Fatal]
  - Jaundice [None]
  - Metastases to liver [Fatal]
  - Metastases to lung [Fatal]
  - Hyperbilirubinaemia [None]
